FAERS Safety Report 10578210 (Version 2)
Quarter: 2014Q4

REPORT INFORMATION
  Report Type: Spontaneous
  Country: US (occurrence: US)
  Receive Date: 20141112
  Receipt Date: 20141121
  Transmission Date: 20150529
  Serious: Yes (Hospitalization)
  Sender: FDA-Public Use
  Company Number: US-BIOGENIDEC-2014BI113077

PATIENT
  Sex: Female

DRUGS (1)
  1. TECFIDERA [Suspect]
     Active Substance: DIMETHYL FUMARATE
     Indication: MULTIPLE SCLEROSIS
     Route: 048

REACTIONS (8)
  - Nervous system disorder [Unknown]
  - Dizziness [Unknown]
  - Mental disorder [Not Recovered/Not Resolved]
  - Mental impairment [Unknown]
  - Insomnia [Unknown]
  - General symptom [Unknown]
  - Major depression [Not Recovered/Not Resolved]
  - Cognitive disorder [Unknown]
